FAERS Safety Report 8153824-1 (Version None)
Quarter: 2012Q1

REPORT INFORMATION
  Report Type: 
  Country: None (occurrence: None)
  Receive Date: 20120221
  Receipt Date: 20120216
  Transmission Date: 20120608
  Serious: Yes (Other)
  Sender: FDA-Public Use
  Company Number: DE-GLAXOSMITHKLINE-D0074408A

PATIENT
  Sex: Female
  Weight: 63 kg

DRUGS (4)
  1. ZEBINIX [Concomitant]
     Indication: EPILEPSY
     Dosage: 1200MG PER DAY
     Route: 048
  2. TROBALT [Suspect]
     Indication: EPILEPSY
     Route: 048
     Dates: start: 20110801, end: 20120201
  3. KEPPRA [Concomitant]
     Indication: EPILEPSY
     Dosage: 2000MG PER DAY
     Route: 065
  4. VALPROATE SODIUM [Concomitant]
     Indication: EPILEPSY
     Dosage: 600MG PER DAY
     Route: 048

REACTIONS (2)
  - URINARY RETENTION [None]
  - DEPRESSED MOOD [None]
